FAERS Safety Report 24297617 (Version 2)
Quarter: 2024Q4

REPORT INFORMATION
  Report Type: Spontaneous
  Country: FR (occurrence: FR)
  Receive Date: 20240909
  Receipt Date: 20241028
  Transmission Date: 20250115
  Serious: Yes (Hospitalization)
  Sender: NOVARTIS
  Company Number: None

PATIENT
  Age: 49 Year
  Sex: Male
  Weight: 63.2 kg

DRUGS (6)
  1. ALPELISIB [Suspect]
     Active Substance: ALPELISIB
     Indication: Growth disorder
     Dosage: 250 MG, QD
     Route: 048
     Dates: start: 20240724, end: 20240725
  2. ALPELISIB [Suspect]
     Active Substance: ALPELISIB
     Dosage: 125 MG, QD
     Route: 048
     Dates: start: 20240726, end: 20240811
  3. ALPELISIB [Suspect]
     Active Substance: ALPELISIB
     Dosage: 62.5 MG, QD
     Route: 048
     Dates: start: 20240817, end: 20240819
  4. ALPELISIB [Suspect]
     Active Substance: ALPELISIB
     Dosage: 125 MG
     Route: 048
     Dates: start: 20240820
  5. TRAMADOL HYDROCHLORIDE [Concomitant]
     Active Substance: TRAMADOL HYDROCHLORIDE
     Indication: Product used for unknown indication
     Dosage: 100 MG, QD
     Route: 048
     Dates: start: 20240711, end: 20240903
  6. PIPERACILLIN SODIUM\TAZOBACTAM SODIUM [Concomitant]
     Active Substance: PIPERACILLIN SODIUM\TAZOBACTAM SODIUM
     Indication: Product used for unknown indication
     Dosage: 10 G, QD
     Route: 030
     Dates: start: 20240725, end: 20240808

REACTIONS (4)
  - Hyperglycaemia [Recovered/Resolved]
  - Eosinophilia [Recovering/Resolving]
  - Hepatitis cholestatic [Not Recovered/Not Resolved]
  - Rash [Recovered/Resolved]

NARRATIVE: CASE EVENT DATE: 20240726
